FAERS Safety Report 15765528 (Version 1)
Quarter: 2018Q4

REPORT INFORMATION
  Report Type: Spontaneous
  Country: US (occurrence: US)
  Receive Date: 20181227
  Receipt Date: 20181227
  Transmission Date: 20190205
  Serious: Yes (Life-Threatening, Hospitalization)
  Sender: FDA-Public Use
  Company Number: None

PATIENT
  Age: 61 Year
  Sex: Female
  Weight: 120.6 kg

DRUGS (1)
  1. HYDROCHLOROTHIAZIDE AND LISINOPRIL [Suspect]
     Active Substance: HYDROCHLOROTHIAZIDE\LISINOPRIL
     Indication: SECONDARY HYPERTENSION
     Route: 048
     Dates: start: 20181120, end: 20181214

REACTIONS (4)
  - Throat tightness [None]
  - Dyspnoea [None]
  - Swelling face [None]
  - Feeling hot [None]

NARRATIVE: CASE EVENT DATE: 20181214
